FAERS Safety Report 21298918 (Version 1)
Quarter: 2022Q3

REPORT INFORMATION
  Report Type: Spontaneous
  Country: US (occurrence: None)
  Receive Date: 20220905
  Receipt Date: 20220905
  Transmission Date: 20221026
  Serious: Yes (Life-Threatening, Hospitalization)
  Sender: FDA-Public Use
  Company Number: None

PATIENT
  Age: 66 Year
  Sex: Male
  Weight: 135 kg

DRUGS (1)
  1. BASAGLAR [Suspect]
     Active Substance: INSULIN GLARGINE
     Indication: Diabetes mellitus
     Dosage: OTHER STRENGTH : 100 U;?OTHER QUANTITY : 50 50 UNITS;?FREQUENCY : AT BEDTIME;?
     Route: 058

REACTIONS (6)
  - Blood glucose decreased [None]
  - Loss of consciousness [None]
  - Dizziness [None]
  - Sluggishness [None]
  - Device delivery system issue [None]
  - Product substitution issue [None]

NARRATIVE: CASE EVENT DATE: 20220904
